FAERS Safety Report 6722772-3 (Version None)
Quarter: 2010Q2

REPORT INFORMATION
  Report Type: 
  Country: None (occurrence: None)
  Receive Date: 20100511
  Receipt Date: 20100427
  Transmission Date: 20101027
  Serious: Yes (Hospitalization)
  Sender: FDA-Public Use
  Company Number: 2010-1363

PATIENT
  Age: 69 Year
  Sex: Male

DRUGS (4)
  1. APO-GO  PFS (APO-GO) (APOMORPHINE HYDROCHLORIDE) (APOMORPHINE HYDROCHL [Suspect]
     Indication: PARKINSON'S DISEASE
     Dosage: (16 HOURS PER DAY), SUBCUTANEOUS
     Route: 058
     Dates: start: 20090512, end: 20100401
  2. MIRTAZAPINE [Concomitant]
  3. MADOPAR LT(MADOPAR /00349201/) [Concomitant]
  4. ISICOM (SINEMET) [Concomitant]

REACTIONS (1)
  - BRADYKINESIA [None]
